FAERS Safety Report 11167202 (Version 1)
Quarter: 2015Q2

REPORT INFORMATION
  Report Type: Spontaneous
  Country: US (occurrence: None)
  Receive Date: 20150515
  Receipt Date: 20150515
  Transmission Date: 20150821
  Serious: Yes (Hospitalization)
  Sender: FDA-Public Use
  Company Number: 114643

PATIENT
  Age: 56 Year
  Sex: Male
  Weight: 158.8 kg

DRUGS (1)
  1. CIMZIA [Suspect]
     Active Substance: CERTOLIZUMAB PEGOL
     Route: 058
     Dates: start: 20090126

REACTIONS (2)
  - Cellulitis [None]
  - Abdominal infection [None]

NARRATIVE: CASE EVENT DATE: 20140225
